FAERS Safety Report 19501347 (Version 2)
Quarter: 2021Q3

REPORT INFORMATION
  Report Type: Report from Study
  Country: EG (occurrence: EG)
  Receive Date: 20210707
  Receipt Date: 20210811
  Transmission Date: 20211014
  Serious: Yes (Hospitalization, Other)
  Sender: FDA-Public Use
  Company Number: EG-EMD SERONO-9248961

PATIENT
  Age: 46 Year
  Sex: Female

DRUGS (2)
  1. CORTISONE [Suspect]
     Active Substance: CORTISONE
     Indication: MULTIPLE SCLEROSIS RELAPSE
  2. REBIF [Suspect]
     Active Substance: INTERFERON BETA-1A
     Indication: MULTIPLE SCLEROSIS
     Route: 058

REACTIONS (3)
  - Cardiac disorder [Unknown]
  - Blood glucose increased [Recovering/Resolving]
  - Eye disorder [Recovered/Resolved]

NARRATIVE: CASE EVENT DATE: 202102
